FAERS Safety Report 12486761 (Version 2)
Quarter: 2016Q2

REPORT INFORMATION
  Report Type: Spontaneous
  Country: US (occurrence: US)
  Receive Date: 20160621
  Receipt Date: 20160623
  Transmission Date: 20160815
  Serious: No
  Sender: FDA-Public Use
  Company Number: US-ALLERGAN-1655894US

PATIENT
  Age: 23 Year
  Sex: Female
  Weight: 78.91 kg

DRUGS (1)
  1. LILETTA [Suspect]
     Active Substance: LEVONORGESTREL
     Indication: CONTRACEPTION
     Dosage: UNK
     Route: 015
     Dates: start: 20160128, end: 20160318

REACTIONS (2)
  - Device expulsion [Recovered/Resolved]
  - Uterine spasm [Recovered/Resolved]

NARRATIVE: CASE EVENT DATE: 20160318
